FAERS Safety Report 16267718 (Version 1)
Quarter: 2019Q2

REPORT INFORMATION
  Report Type: Spontaneous
  Country: US (occurrence: US)
  Receive Date: 20190503
  Receipt Date: 20190503
  Transmission Date: 20190711
  Serious: Yes (Hospitalization)
  Sender: FDA-Public Use
  Company Number: US-SUN PHARMACEUTICAL INDUSTRIES LTD-2018R1-191697

PATIENT
  Age: 21 Year
  Sex: Female

DRUGS (12)
  1. CAFFEINE. [Suspect]
     Active Substance: CAFFEINE
     Indication: AGITATION
  2. HYDROCODONE AND ACETAMINOPHEN [Suspect]
     Active Substance: ACETAMINOPHEN\HYDROCODONE
     Indication: AGITATION
     Dosage: UNK
     Route: 065
  3. ZOLPIDEM [Suspect]
     Active Substance: ZOLPIDEM\ZOLPIDEM TARTRATE
     Indication: HYPOTENSION
  4. VECURONIUM [Suspect]
     Active Substance: VECURONIUM BROMIDE
     Indication: HYPOTENSION
     Dosage: 10 MG
     Route: 065
  5. MIDAZOLAM [Suspect]
     Active Substance: MIDAZOLAM HYDROCHLORIDE
     Indication: AGITATION
     Dosage: 20 MG
     Route: 065
  6. MIDAZOLAM [Suspect]
     Active Substance: MIDAZOLAM HYDROCHLORIDE
     Indication: HYPOTENSION
  7. HYDROCODONE AND ACETAMINOPHEN [Suspect]
     Active Substance: ACETAMINOPHEN\HYDROCODONE
     Indication: HYPOTENSION
  8. CAFFEINE. [Suspect]
     Active Substance: CAFFEINE
     Indication: HYPOTENSION
     Dosage: 28 GRAM
     Route: 065
  9. ALPRAZOLAM. [Suspect]
     Active Substance: ALPRAZOLAM
     Indication: HYPOTENSION
  10. VECURONIUM [Suspect]
     Active Substance: VECURONIUM BROMIDE
     Indication: AGITATION
  11. ZOLPIDEM [Suspect]
     Active Substance: ZOLPIDEM\ZOLPIDEM TARTRATE
     Indication: AGITATION
     Dosage: UNK
     Route: 065
  12. ALPRAZOLAM. [Suspect]
     Active Substance: ALPRAZOLAM
     Indication: AGITATION
     Dosage: UNK
     Route: 065

REACTIONS (4)
  - Toxicity to various agents [Unknown]
  - Caffeine consumption [Unknown]
  - Tachycardia [Unknown]
  - Blood pressure increased [Not Recovered/Not Resolved]
